FAERS Safety Report 4609624-X (Version None)
Quarter: 2005Q1

REPORT INFORMATION
  Report Type: 
  Country: None (occurrence: None)
  Receive Date: 20050314
  Receipt Date: 20050228
  Transmission Date: 20050727
  Serious: Yes (Life-Threatening, Hospitalization)
  Sender: FDA-Public Use
  Company Number: 2005038975

PATIENT
  Age: 70 Year
  Sex: Female

DRUGS (2)
  1. FRAGMIN [Suspect]
     Indication: THROMBOSIS PROPHYLAXIS
     Dosage: 2500 I.U. (OD INTERVAL:  EVERY DAY), SUBCUTANEOUS
     Route: 058
     Dates: start: 20050203, end: 20050208
  2. TRAMADOL HCL [Concomitant]

REACTIONS (1)
  - DEEP VEIN THROMBOSIS [None]
